FAERS Safety Report 8419076-X (Version None)
Quarter: 2012Q2

REPORT INFORMATION
  Report Type: 
  Country: None (occurrence: None)
  Receive Date: 20120607
  Receipt Date: 20120605
  Transmission Date: 20120825
  Serious: Yes (Life-Threatening, Other)
  Sender: FDA-Public Use
  Company Number: PHEH2012US009196

PATIENT
  Sex: Female

DRUGS (2)
  1. RECLAST [Suspect]
     Route: 042
     Dates: start: 20100901
  2. PROZAC [Concomitant]
     Dosage: 10 MG, QD
     Route: 048

REACTIONS (3)
  - CHEST DISCOMFORT [None]
  - PAIN [None]
  - DYSPNOEA [None]
